FAERS Safety Report 9515957 (Version 1)
Quarter: 2013Q1

REPORT INFORMATION
  Report Type: Spontaneous
  Country: US (occurrence: None)
  Receive Date: 20130305
  Receipt Date: 20130305
  Transmission Date: 20140127
  Serious: Yes (Other)
  Sender: FDA-Public Use
  Company Number: 163-21880-12080988

PATIENT
  Age: 78 Year
  Sex: Female

DRUGS (7)
  1. REVLIMID (LENALIDOMIDE) (CAPSULES) [Suspect]
     Indication: MYELODYSPLASTIC SYNDROME
     Dosage: 21 IN 21 D
     Route: 048
     Dates: start: 20120723
  2. HYDROXYZINE HCL (HYDROXYZINE HYDROCHLORIDE) (UNKNOWN) [Concomitant]
  3. ACETAMINOPHEN EXTRA STRENGTH (PARACETAMOL) (UNKNOWN) [Concomitant]
  4. VALTREX (VALACICLOVIR HYDROCHLORIDE) (UNKNOWN) [Concomitant]
  5. BACTRIM DS (BACTRIM) (UNKNOWN) [Concomitant]
  6. COUMADIN (WARFARIN SODIUM)) (UNKNOWN) [Concomitant]
  7. PREDNISONE (PREDNISONE) (UNKNOWN) [Concomitant]

REACTIONS (2)
  - Diarrhoea [None]
  - Rash [None]
